FAERS Safety Report 5412322-6 (Version None)
Quarter: 2007Q3

REPORT INFORMATION
  Report Type: 
  Country: None (occurrence: None)
  Receive Date: 20070809
  Receipt Date: 20070725
  Transmission Date: 20080115
  Serious: Yes (Death, Life-Threatening, Hospitalization, Other)
  Sender: FDA-Public Use
  Company Number: 015470

PATIENT
  Age: 22 Year
  Sex: Male

DRUGS (3)
  1. ADDERALL 10 [Suspect]
     Dosage: 50 MG, ONCE, ORAL
     Route: 048
     Dates: start: 20070519, end: 20070519
  2. MODAFINIL [Suspect]
     Dosage: 6000 MG, ONCE, ORAL
     Route: 048
     Dates: start: 20070519, end: 20070519
  3. ZONISAMIDE [Concomitant]

REACTIONS (29)
  - ACUTE RESPIRATORY DISTRESS SYNDROME [None]
  - ASPIRATION [None]
  - BLOOD PRESSURE DECREASED [None]
  - BRONCHOPLEURAL FISTULA [None]
  - CARDIAC DISORDER [None]
  - CONDITION AGGRAVATED [None]
  - CONVULSIVE THRESHOLD LOWERED [None]
  - ENCEPHALOPATHY [None]
  - GENERALISED NON-CONVULSIVE EPILEPSY [None]
  - GRAND MAL CONVULSION [None]
  - HEPATIC FAILURE [None]
  - HYPOVOLAEMIA [None]
  - ILEUS [None]
  - LEUKOCYTOSIS [None]
  - LUNG INFILTRATION [None]
  - MECHANICAL VENTILATION COMPLICATION [None]
  - METABOLIC ACIDOSIS [None]
  - MULTIPLE DRUG OVERDOSE INTENTIONAL [None]
  - NERVOUS SYSTEM DISORDER [None]
  - NOSOCOMIAL INFECTION [None]
  - PNEUMONIA BACTERIAL [None]
  - PNEUMOTHORAX [None]
  - RENAL FAILURE [None]
  - RESPIRATORY FAILURE [None]
  - RHABDOMYOLYSIS [None]
  - SHIFT TO THE LEFT [None]
  - SINUS TACHYCARDIA [None]
  - STATUS EPILEPTICUS [None]
  - TOXIC ENCEPHALOPATHY [None]
